FAERS Safety Report 8341450-0 (Version None)
Quarter: 2012Q2

REPORT INFORMATION
  Report Type: 
  Country: None (occurrence: None)
  Receive Date: 20120507
  Receipt Date: 20120425
  Transmission Date: 20120825
  Serious: Yes (Hospitalization)
  Sender: FDA-Public Use
  Company Number: FR-MERCK-1204USA04246

PATIENT
  Age: 51 Year
  Sex: Male

DRUGS (3)
  1. FLUCONAZOLE [Concomitant]
     Indication: CANDIDIASIS
     Route: 065
     Dates: start: 20120324
  2. CANCIDAS [Suspect]
     Route: 042
     Dates: start: 20120329, end: 20120331
  3. CANCIDAS [Suspect]
     Indication: CANDIDIASIS
     Route: 042
     Dates: start: 20110328, end: 20110328

REACTIONS (1)
  - HYPERNATRAEMIA [None]
